FAERS Safety Report 9988860 (Version 2)
Quarter: 2014Q2

REPORT INFORMATION
  Report Type: Spontaneous
  Country: CA (occurrence: CA)
  Receive Date: 20140310
  Receipt Date: 20140407
  Transmission Date: 20141212
  Serious: Yes (Hospitalization, Other)
  Sender: FDA-Public Use
  Company Number: CA-AMGEN-CANSP2014016522

PATIENT
  Age: 52 Year
  Sex: Male

DRUGS (8)
  1. ENBREL [Suspect]
     Indication: PSORIATIC ARTHROPATHY
     Dosage: 50 MG, QWK
     Route: 058
     Dates: start: 201201
  2. RAMIPRIL [Concomitant]
     Dosage: 5 MG, QD
     Route: 048
  3. VENTOLIN                           /00139501/ [Concomitant]
     Dosage: UNK UNK, AS NECESSARY
  4. MINOCYCLINE [Concomitant]
     Indication: ROSACEA
     Dosage: 100 MG, QD
     Route: 048
  5. BENADRYL                           /00000402/ [Concomitant]
     Dosage: UNK
  6. FUROSEMIDE [Concomitant]
     Indication: OEDEMA
     Dosage: 80 MG, QD
     Route: 048
  7. FUROSEMIDE [Concomitant]
     Indication: ASCITES
     Dosage: 40 UNK, BID
  8. ARTHROTEC [Concomitant]
     Indication: PSORIATIC ARTHROPATHY
     Dosage: 75 MG, BID AS NECESSARY
     Route: 048

REACTIONS (10)
  - Ascites [Unknown]
  - Hepatic failure [Unknown]
  - Tachycardia [Unknown]
  - Pleural effusion [Recovering/Resolving]
  - Hypersensitivity [Unknown]
  - Oedema peripheral [Unknown]
  - Petechiae [Unknown]
  - Asthenia [Unknown]
  - Hypophagia [Unknown]
  - Pyrexia [Unknown]
